FAERS Safety Report 4461730-9 (Version None)
Quarter: 2004Q3

REPORT INFORMATION
  Report Type: 
  Country: None (occurrence: None)
  Receive Date: 20040929
  Receipt Date: 20040923
  Transmission Date: 20050211
  Serious: Yes (Hospitalization)
  Sender: FDA-Public Use
  Company Number: US-BRISTOL-MYERS SQUIBB COMPANY-12709499

PATIENT
  Age: 21 Year
  Sex: Male
  Weight: 93 kg

DRUGS (6)
  1. CETUXIMAB [Suspect]
     Indication: OESOPHAGEAL CARCINOMA
     Dosage: THERAPY INITIATED 13-AUG-2004
     Route: 042
     Dates: start: 20040917, end: 20040917
  2. CISPLATIN [Suspect]
     Indication: OESOPHAGEAL CARCINOMA
     Dosage: WEEK 1,2,4,5-THERAPY INITIATED 20-AUG-2004
     Route: 042
     Dates: start: 20040917, end: 20040917
  3. IRINOTECAN [Suspect]
     Indication: OESOPHAGEAL CARCINOMA
     Dosage: GIVEN WEEKS 1,2,4,5. THERAPY INITIATED 20-AUG-2004
     Route: 042
     Dates: start: 20040917, end: 20040917
  4. RADIATION THERAPY [Suspect]
     Indication: OESOPHAGEAL CARCINOMA
  5. ACIPHEX [Concomitant]
  6. TYLENOL [Concomitant]

REACTIONS (2)
  - DEHYDRATION [None]
  - OESOPHAGITIS [None]
